FAERS Safety Report 8273592-2 (Version None)
Quarter: 2012Q2

REPORT INFORMATION
  Report Type: 
  Country: None (occurrence: None)
  Receive Date: 20120411
  Receipt Date: 20120125
  Transmission Date: 20120825
  Serious: No
  Sender: FDA-Public Use
  Company Number: US-TEVA-319366USA

PATIENT
  Sex: Male
  Weight: 108.96 kg

DRUGS (7)
  1. NUVIGIL [Suspect]
     Indication: SLEEP APNOEA SYNDROME
     Dosage: 2.5 TABLETS
     Route: 048
     Dates: start: 20120111
  2. DEXMETHYLPHENIDATE HYDROCHLORIDE [Concomitant]
     Indication: ATTENTION DEFICIT/HYPERACTIVITY DISORDER
     Dosage: QAM XR FORMULATION
     Route: 048
  3. DEXMETHYLPHENIDATE HYDROCHLORIDE [Concomitant]
     Dosage: QAM IR FORMULATION
     Route: 048
  4. DEXMETHYLPHENIDATE HYDROCHLORIDE [Concomitant]
     Dosage: QAM XR FORMULATION
     Route: 048
     Dates: start: 20120116
  5. ATORVASTATIN CALCIUM [Concomitant]
     Indication: BLOOD CHOLESTEROL
     Dosage: QD
  6. MULTI-VITAMIN [Concomitant]
  7. NUVIGIL [Suspect]
     Indication: HYPERSOMNIA

REACTIONS (4)
  - RESTLESSNESS [None]
  - DRUG INEFFECTIVE [None]
  - PSYCHOMOTOR HYPERACTIVITY [None]
  - DRUG PRESCRIBING ERROR [None]
